FAERS Safety Report 25178747 (Version 1)
Quarter: 2025Q2

REPORT INFORMATION
  Report Type: Spontaneous
  Country: FR (occurrence: FR)
  Receive Date: 20250409
  Receipt Date: 20250409
  Transmission Date: 20250717
  Serious: Yes (Death)
  Sender: ROCHE
  Company Number: None

PATIENT
  Age: 93 Year
  Sex: Male

DRUGS (9)
  1. ACTIVASE [Interacting]
     Active Substance: ALTEPLASE
     Indication: Ischaemic stroke
     Route: 042
     Dates: start: 20250125, end: 20250125
  2. ACTIVASE [Interacting]
     Active Substance: ALTEPLASE
     Route: 042
     Dates: start: 20250125, end: 20250125
  3. KARDEGIC [Interacting]
     Active Substance: ASPIRIN DL-LYSINE
     Indication: Cardiovascular event prophylaxis
     Route: 048
     Dates: end: 20250125
  4. PANTOPRAZOLE [Concomitant]
     Active Substance: PANTOPRAZOLE
     Indication: Prophylaxis against gastrointestinal ulcer
     Route: 048
     Dates: end: 20250129
  5. AMLODIPINE [Concomitant]
     Active Substance: AMLODIPINE BESYLATE
     Indication: Hypertension
     Route: 048
     Dates: end: 20250129
  6. FUROSEMIDE [Concomitant]
     Active Substance: FUROSEMIDE
     Indication: Hypertension
     Route: 048
     Dates: end: 20250129
  7. TAMSULOSIN HYDROCHLORIDE [Concomitant]
     Active Substance: TAMSULOSIN HYDROCHLORIDE
     Indication: Benign prostatic hyperplasia
     Route: 048
     Dates: end: 20250129
  8. ZOPICLONE [Concomitant]
     Active Substance: ZOPICLONE
     Indication: Sleep disorder
     Route: 048
     Dates: end: 20250125
  9. KALEORID LP 600 mg, csustained-release tablet [Concomitant]
     Indication: Hypokalaemia
     Route: 048
     Dates: end: 20250125

REACTIONS (2)
  - Drug interaction [Fatal]
  - Haemorrhagic transformation stroke [Fatal]

NARRATIVE: CASE EVENT DATE: 20250125
